FAERS Safety Report 9018277 (Version 3)
Quarter: 2013Q1

REPORT INFORMATION
  Report Type: Spontaneous
  Country: TW (occurrence: TW)
  Receive Date: 20130117
  Receipt Date: 20130301
  Transmission Date: 20140127
  Serious: Yes (Death)
  Sender: FDA-Public Use
  Company Number: TW-BAXTER-2013BAX001504

PATIENT
  Sex: Male

DRUGS (2)
  1. DIANEAL LOW CALCIUM (2.5 MEQ/L) PD SOLUTION WITH 1.5% DEXTROSE ^BAXTER [Suspect]
     Indication: PERITONEAL DIALYSIS
     Route: 033
  2. BAXTER EXTRANEAL PERITONEAL DIALYSIS SOLUTION WITH 7.5% ICODEXTRIN [Suspect]
     Indication: PERITONEAL DIALYSIS
     Route: 033

REACTIONS (2)
  - Acute myocardial infarction [Fatal]
  - Hyperkalaemia [Fatal]
